FAERS Safety Report 14683665 (Version 2)
Quarter: 2018Q2

REPORT INFORMATION
  Report Type: Report from Study
  Country: IN (occurrence: IN)
  Receive Date: 20180327
  Receipt Date: 20180529
  Transmission Date: 20180711
  Serious: Yes (Hospitalization, Other)
  Sender: FDA-Public Use
  Company Number: PHHY2017IN063900

PATIENT
  Age: 74 Year
  Sex: Female

DRUGS (5)
  1. TASIGNA [Suspect]
     Active Substance: NILOTINIB
     Dosage: 400 UG, BID
     Route: 048
     Dates: start: 20180101, end: 201803
  2. TASIGNA [Suspect]
     Active Substance: NILOTINIB
     Dosage: UNK
     Route: 065
     Dates: start: 201803, end: 20180501
  3. TASIGNA [Suspect]
     Active Substance: NILOTINIB
     Dosage: UNK
     Route: 065
     Dates: start: 201805
  4. TASIGNA [Suspect]
     Active Substance: NILOTINIB
     Indication: CHRONIC MYELOID LEUKAEMIA
     Dosage: 300 MG, BID
     Route: 048
     Dates: start: 201306, end: 20170428
  5. TASIGNA [Suspect]
     Active Substance: NILOTINIB
     Dosage: 400 MG, BID
     Route: 048
     Dates: start: 20170428, end: 201711

REACTIONS (6)
  - Malignant neoplasm progression [Not Recovered/Not Resolved]
  - Feeding disorder [Recovering/Resolving]
  - Chronic myeloid leukaemia [Not Recovered/Not Resolved]
  - Hepatic infection [Recovering/Resolving]
  - Malaise [Unknown]
  - Cytogenetic analysis abnormal [Unknown]

NARRATIVE: CASE EVENT DATE: 20170428
